FAERS Safety Report 10570848 (Version 1)
Quarter: 2014Q4

REPORT INFORMATION
  Report Type: Spontaneous
  Country: US (occurrence: None)
  Receive Date: 20141106
  Receipt Date: 20141106
  Transmission Date: 20150529
  Serious: No
  Sender: FDA-Public Use
  Company Number: None

PATIENT
  Age: 52 Year
  Sex: Male
  Weight: 91.4 kg

DRUGS (5)
  1. OLYSIO [Suspect]
     Active Substance: SIMEPREVIR
     Indication: HEPATITIS
     Route: 048
     Dates: start: 20141010
  2. ATORVASTATIN [Concomitant]
     Active Substance: ATORVASTATIN
  3. SOVALDI [Suspect]
     Active Substance: SOFOSBUVIR
     Indication: HEPATITIS
     Route: 048
     Dates: start: 20141010
  4. LISINOPRIL. [Concomitant]
     Active Substance: LISINOPRIL
  5. MUCINEX DM [Concomitant]
     Active Substance: DEXTROMETHORPHAN HYDROBROMIDE\GUAIFENESIN

REACTIONS (2)
  - Insomnia [None]
  - Headache [None]

NARRATIVE: CASE EVENT DATE: 20141010
